FAERS Safety Report 8879683 (Version 1)
Quarter: 2012Q4

REPORT INFORMATION
  Report Type: Report from Study
  Country: GB (occurrence: GB)
  Receive Date: 20121101
  Receipt Date: 20121101
  Transmission Date: 20130627
  Serious: Yes (Other)
  Sender: FDA-Public Use
  Company Number: GB-AMGEN-GBRCT2012069088

PATIENT
  Age: 10 Year
  Sex: Female
  Weight: 43 kg

DRUGS (3)
  1. ETANERCEPT [Suspect]
     Indication: JUVENILE ARTHRITIS
     Dosage: 10 mg, 2x/day
     Route: 058
     Dates: start: 20080527
  2. ONDANSETRON [Concomitant]
     Indication: PRODUCT USED FOR UNKNOWN INDICATION
     Dosage: 4 mg, as needed
     Route: 048
     Dates: start: 20110301
  3. FOLIC ACID [Concomitant]
     Indication: PRODUCT USED FOR UNKNOWN INDICATION
     Dosage: 5 mg, weekly
     Route: 048
     Dates: start: 20110301

REACTIONS (2)
  - Rash generalised [Recovered/Resolved]
  - Pyrexia [Recovered/Resolved]
